FAERS Safety Report 7316949-6 (Version None)
Quarter: 2011Q1

REPORT INFORMATION
  Report Type: 
  Country: None (occurrence: None)
  Receive Date: 20110226
  Receipt Date: 20100903
  Transmission Date: 20110831
  Serious: No
  Sender: FDA-Public Use
  Company Number: US-ALLERGAN-1011446US

PATIENT
  Age: 81 Year
  Sex: Female

DRUGS (2)
  1. BOTOXA? [Suspect]
     Indication: EYELID PTOSIS
     Dosage: UNK
     Route: 030
     Dates: start: 20100715, end: 20100715
  2. BOTOXA? [Suspect]
     Dosage: UNK
     Route: 030
     Dates: start: 20070101, end: 20070101

REACTIONS (3)
  - FACIAL PARESIS [None]
  - EYELID PTOSIS [None]
  - VISION BLURRED [None]
